FAERS Safety Report 10874696 (Version 3)
Quarter: 2015Q3

REPORT INFORMATION
  Report Type: Spontaneous
  Country: US (occurrence: US)
  Receive Date: 20150227
  Receipt Date: 20150928
  Transmission Date: 20151125
  Serious: Yes (Hospitalization)
  Sender: FDA-Public Use
  Company Number: US-BAYER-2015-029564

PATIENT
  Age: 49 Year
  Sex: Female
  Weight: 87.53 kg

DRUGS (7)
  1. SYNTHROID [Concomitant]
     Active Substance: LEVOTHYROXINE SODIUM
     Dosage: 150 MG, UNK
     Dates: start: 1991
  2. MIDRIN [Concomitant]
     Active Substance: ACETAMINOPHEN\DICHLORALPHENAZONE\ISOMETHEPTENE
     Dosage: UNK
  3. TRIPHASIL [Concomitant]
     Active Substance: ETHINYL ESTRADIOL\LEVONORGESTREL
     Dosage: UNK
  4. CRESTOR [Concomitant]
     Active Substance: ROSUVASTATIN CALCIUM
     Dosage: UNK
     Dates: start: 2009
  5. DEPO-PROVERA [Concomitant]
     Active Substance: MEDROXYPROGESTERONE ACETATE
     Dosage: UNK
  6. MIRENA [Suspect]
     Active Substance: LEVONORGESTREL
     Indication: CONTRACEPTION
     Dosage: 20 MCG/24HR, CONT
     Route: 015
     Dates: start: 20090422, end: 20140624
  7. MEDROXYPROGESTERONE ACETATE. [Concomitant]
     Active Substance: MEDROXYPROGESTERONE ACETATE
     Dosage: 2.5 MG, UNK

REACTIONS (10)
  - Injury [None]
  - Uterine injury [None]
  - Depression [None]
  - Device issue [None]
  - Emotional distress [None]
  - Uterine perforation [None]
  - Pain [None]
  - Pelvic adhesions [None]
  - Anxiety [None]
  - Device use error [None]

NARRATIVE: CASE EVENT DATE: 200908
